FAERS Safety Report 7878977-1 (Version None)
Quarter: 2011Q4

REPORT INFORMATION
  Report Type: 
  Country: None (occurrence: None)
  Receive Date: 20111101
  Receipt Date: 20111019
  Transmission Date: 20120403
  Serious: Yes (Other)
  Sender: FDA-Public Use
  Company Number: PHEH2011US07289

PATIENT
  Sex: Female

DRUGS (4)
  1. GILENYA [Suspect]
     Dosage: 0.5 MG, QD
     Route: 048
     Dates: start: 20110401
  2. WELLBUTRIN [Concomitant]
  3. METFORMIN HCL [Concomitant]
  4. NIACIN [Concomitant]

REACTIONS (3)
  - SKIN PAPILLOMA [None]
  - MASS [None]
  - SKIN EXFOLIATION [None]
